FAERS Safety Report 4881159-9 (Version None)
Quarter: 2006Q1

REPORT INFORMATION
  Report Type: 
  Country: None (occurrence: None)
  Receive Date: 20060116
  Receipt Date: 20060109
  Transmission Date: 20060701
  Serious: Yes (Hospitalization, Other)
  Sender: FDA-Public Use
  Company Number: GB-JNJFOC-20060101639

PATIENT
  Sex: Female
  Weight: 80 kg

DRUGS (12)
  1. REMICADE [Suspect]
     Indication: RHEUMATOID ARTHRITIS
     Route: 042
  2. METHOTREXATE [Concomitant]
     Route: 065
  3. PREDNISOLONE [Concomitant]
     Route: 065
  4. AMITRIPTYLINE HCL [Concomitant]
     Route: 065
  5. CALCEOS [Concomitant]
     Route: 065
  6. CALCEOS [Concomitant]
     Route: 065
  7. ETIDRONATE DISODIUM [Concomitant]
     Route: 065
  8. HORMONE REPLACEMENT THERAPY [Concomitant]
     Route: 065
  9. ROFECOXIB [Concomitant]
     Route: 065
  10. SEROXAT [Concomitant]
     Route: 065
  11. TRAMADOL HCL [Concomitant]
     Route: 065
  12. LANSOPRAZOLE [Concomitant]
     Route: 065

REACTIONS (1)
  - ARTHRITIS [None]
